FAERS Safety Report 7407713-8 (Version None)
Quarter: 2011Q2

REPORT INFORMATION
  Report Type: 
  Country: None (occurrence: None)
  Receive Date: 20110408
  Receipt Date: 20110408
  Transmission Date: 20111010
  Serious: Yes (Life-Threatening, Disabling)
  Sender: FDA-Public Use
  Company Number: None

PATIENT
  Age: 10 Month
  Sex: Male
  Weight: 7 kg

DRUGS (3)
  1. CISATRACURIUM BESYLATE [Suspect]
     Indication: RESPIRATORY FAILURE
     Dosage: 0.1 - 0.3 MG / KG PER HOUR IV DRIP
     Route: 041
     Dates: start: 20110215, end: 20110219
  2. CISATRACURIUM BESYLATE [Suspect]
     Indication: MECHANICAL VENTILATION
     Dosage: 0.1 - 0.3 MG / KG PER HOUR IV DRIP
     Route: 041
     Dates: start: 20110215, end: 20110219
  3. CISATRACURIUM BESYLATE [Suspect]
     Dosage: 0.1 MG / KG ONCE IV BOLUS
     Route: 040

REACTIONS (1)
  - DRUG INEFFECTIVE [None]
